FAERS Safety Report 8324901-7 (Version None)
Quarter: 2012Q2

REPORT INFORMATION
  Report Type: 
  Country: None (occurrence: None)
  Receive Date: 20120501
  Receipt Date: 20120417
  Transmission Date: 20120825
  Serious: Yes (Congenital Anomaly, Other)
  Sender: FDA-Public Use
  Company Number: DE-MYLANLABS-2012S1007972

PATIENT
  Age: 0 Year
  Sex: Female
  Weight: 2.26 kg

DRUGS (2)
  1. VALPROIC ACID [Suspect]
     Dosage: 750 [MG/D (300-150-300) ]
     Route: 064
  2. KEPPRA [Suspect]
     Dosage: 3000 [MG/D (1500-0-1500) ]
     Route: 064

REACTIONS (5)
  - MATERNAL EXPOSURE DURING PREGNANCY [None]
  - CONGENITAL ANOMALY [None]
  - CONGENITAL KNEE DISLOCATION [None]
  - LOW SET EARS [None]
  - HYPOPLASTIC LEFT HEART SYNDROME [None]
